FAERS Safety Report 21627038 (Version 1)
Quarter: 2022Q4

REPORT INFORMATION
  Report Type: Spontaneous
  Country: CA (occurrence: CA)
  Receive Date: 20221122
  Receipt Date: 20221122
  Transmission Date: 20230113
  Serious: Yes (Other)
  Sender: FDA-Public Use
  Company Number: None

PATIENT
  Age: 58 Year
  Sex: Male

DRUGS (7)
  1. IRINOTECAN [Suspect]
     Active Substance: IRINOTECAN
     Indication: Product used for unknown indication
     Dosage: INJECTION
     Route: 042
  2. ATROPINE [Concomitant]
     Active Substance: ATROPINE
  3. FLUOROURACIL [Concomitant]
     Active Substance: FLUOROURACIL
  4. HYDROMORPHONE [Concomitant]
     Active Substance: HYDROMORPHONE
     Dosage: CAPSULE SUSTAINED RELEASE
  5. LEUCOVORIN [Concomitant]
     Active Substance: LEUCOVORIN
  6. OLANZAPINE [Concomitant]
     Active Substance: OLANZAPINE
  7. OXALIPLATIN [Concomitant]
     Active Substance: OXALIPLATIN

REACTIONS (3)
  - Dysarthria [Recovered/Resolved]
  - Nausea [Recovered/Resolved]
  - Tongue disorder [Recovered/Resolved]
